FAERS Safety Report 22191540 (Version 1)
Quarter: 2023Q2

REPORT INFORMATION
  Report Type: Spontaneous
  Country: UZ (occurrence: UZ)
  Receive Date: 20230410
  Receipt Date: 20230410
  Transmission Date: 20230722
  Serious: Yes (Death, Hospitalization, Other)
  Sender: FDA-Public Use
  Company Number: UZ-MYLANLABS-2023M1036668

PATIENT
  Age: 79 Year
  Sex: Female
  Weight: 30 kg

DRUGS (8)
  1. MOXIFLOXACIN [Suspect]
     Active Substance: MOXIFLOXACIN
     Indication: Tuberculosis
     Dosage: UNK, 400
     Route: 048
     Dates: start: 20221210, end: 20230317
  2. MOXIFLOXACIN [Suspect]
     Active Substance: MOXIFLOXACIN
     Dosage: UNK, 400
     Route: 065
     Dates: start: 20230313
  3. BEDAQUILINE [Suspect]
     Active Substance: BEDAQUILINE
     Indication: Tuberculosis
     Dosage: UNK, 200X3 TIMES A WEEK
     Route: 048
     Dates: start: 20221210, end: 20230317
  4. BEDAQUILINE [Suspect]
     Active Substance: BEDAQUILINE
     Dosage: UNK, 100
     Route: 048
     Dates: start: 20230313
  5. LINEZOLID [Suspect]
     Active Substance: LINEZOLID
     Indication: Tuberculosis
     Dosage: UNK, 600
     Route: 065
     Dates: start: 20221210, end: 20230317
  6. LINEZOLID [Suspect]
     Active Substance: LINEZOLID
     Dosage: UNK, 300
     Route: 048
     Dates: start: 20230313
  7. CLONAZEPAM [Suspect]
     Active Substance: CLONAZEPAM
     Indication: Tuberculosis
     Dosage: UNK, 100
     Route: 065
     Dates: start: 20221210, end: 20230317
  8. CLONAZEPAM [Suspect]
     Active Substance: CLONAZEPAM
     Dosage: UNK, 50
     Route: 048
     Dates: start: 20230313

REACTIONS (9)
  - Death [Fatal]
  - Nausea [Not Recovered/Not Resolved]
  - Abdominal pain upper [Not Recovered/Not Resolved]
  - Dyspepsia [Not Recovered/Not Resolved]
  - Decreased appetite [Not Recovered/Not Resolved]
  - Asphyxia [Unknown]
  - Dyspnoea at rest [Unknown]
  - Oedema peripheral [Unknown]
  - Weight decreased [Unknown]

NARRATIVE: CASE EVENT DATE: 20230118
